FAERS Safety Report 7715327-5 (Version None)
Quarter: 2011Q3

REPORT INFORMATION
  Report Type: 
  Country: None (occurrence: None)
  Receive Date: 20110810
  Receipt Date: 20110602
  Transmission Date: 20111222
  Serious: No
  Sender: FDA-Public Use
  Company Number: 1000021424

PATIENT
  Age: 40 Year
  Sex: Female

DRUGS (7)
  1. OMNARIS (CICLESONIDE) (CICLESONIDE) [Concomitant]
  2. SAVELLA [Suspect]
     Indication: FIBROMYALGIA
     Dosage: 25 MG (25 MG, 1 IN 1 D), ORAL
     Route: 048
     Dates: start: 20110401, end: 20110401
  3. ADVAIR (SERETIDE) (SERETIDE) [Concomitant]
  4. CLONAZEPAM [Concomitant]
  5. SINGULAIR (MONTELUKAST) (MONTELUKAST) [Concomitant]
  6. VITAMIN B-12 (CYANOCOBALAMIN) (CYANOCOBALAMIN) [Concomitant]
  7. LAMOTRIGINE [Concomitant]

REACTIONS (1)
  - URTICARIA [None]
